FAERS Safety Report 9256209 (Version 1)
Quarter: 2013Q2

REPORT INFORMATION
  Report Type: Spontaneous
  Country: US (occurrence: US)
  Receive Date: 20130425
  Receipt Date: 20130425
  Transmission Date: 20140414
  Serious: No
  Sender: FDA-Public Use
  Company Number: US-AMGEN-USASP2012072894

PATIENT
  Age: 40 Year
  Sex: Female

DRUGS (2)
  1. NEULASTA [Suspect]
     Indication: PRODUCT USED FOR UNKNOWN INDICATION
     Dosage: UNK UNK, AFTER CHEMO
  2. CHEMOTHERAPEUTICS [Concomitant]
     Dosage: UNK

REACTIONS (3)
  - Pruritus [Unknown]
  - Urticaria [Unknown]
  - Rash [Unknown]
